FAERS Safety Report 8797229 (Version 2)
Quarter: 2013Q3

REPORT INFORMATION
  Report Type: Spontaneous
  Country: US (occurrence: US)
  Receive Date: 20120920
  Receipt Date: 20130826
  Transmission Date: 20140515
  Serious: No
  Sender: FDA-Public Use
  Company Number: US-009507513-1209USA006961

PATIENT
  Sex: Female

DRUGS (4)
  1. REBETOL [Suspect]
     Indication: HEPATITIS
     Dosage: UNK
     Route: 048
     Dates: start: 20080905, end: 20090807
  2. REBETOL [Suspect]
     Dosage: UNK
     Route: 048
     Dates: start: 20120917, end: 20130214
  3. PEGASYS [Concomitant]
     Indication: HEPATITIS C
     Dosage: UNK
     Dates: start: 20080905, end: 20090807
  4. PEGASYS [Concomitant]
     Dosage: UNK
     Dates: start: 20120917, end: 20130214

REACTIONS (4)
  - Drug ineffective [Unknown]
  - Therapeutic response decreased [Unknown]
  - Drug ineffective [Unknown]
  - Therapeutic response decreased [Unknown]
